FAERS Safety Report 4410792-3 (Version None)
Quarter: 2004Q2

REPORT INFORMATION
  Report Type: 
  Country: None (occurrence: None)
  Receive Date: 20040630
  Receipt Date: 20040412
  Transmission Date: 20050107
  Serious: No
  Sender: FDA-Public Use
  Company Number: 04P-163-0257347-00

PATIENT
  Age: 46 Year
  Sex: Female

DRUGS (7)
  1. HUMIRA [Suspect]
     Indication: RHEUMATOID ARTHRITIS
     Dosage: 40 MG, 1 IN 2 WK, SUBCUTANEOUS
     Route: 058
     Dates: start: 20040101
  2. PREDNISONE [Concomitant]
  3. RISEDRONATE SODIUM [Concomitant]
  4. ZOLPIDEM TARTRATE [Concomitant]
  5. ULTRACET [Concomitant]
  6. ESTRADIOL [Concomitant]
  7. CELECOXIB [Concomitant]

REACTIONS (3)
  - ALOPECIA [None]
  - INJECTION SITE BURNING [None]
  - INJECTION SITE ERYTHEMA [None]
